FAERS Safety Report 15148245 (Version 7)
Quarter: 2020Q2

REPORT INFORMATION
  Report Type: Spontaneous
  Country: CA (occurrence: CA)
  Receive Date: 20180716
  Receipt Date: 20200501
  Transmission Date: 20200713
  Serious: Yes (Death, Life-Threatening, Hospitalization)
  Sender: FDA-Public Use
  Company Number: CA-CELGENEUS-CAN-20180703956

PATIENT
  Age: 76 Year
  Sex: Male
  Weight: 52 kg

DRUGS (17)
  1. LEVOTHYROXINE. [Concomitant]
     Active Substance: LEVOTHYROXINE
     Indication: HYPOTHYROIDISM
     Dosage: .025 MILLIGRAM
     Route: 048
     Dates: start: 2008
  2. FUROSEMIDE. [Concomitant]
     Active Substance: FUROSEMIDE
     Dosage: 40 MILLIGRAM
     Route: 041
     Dates: start: 20180424, end: 20180424
  3. FUROSEMIDE. [Concomitant]
     Active Substance: FUROSEMIDE
     Dosage: 80 MILLIGRAM
     Route: 048
     Dates: start: 20180514
  4. CLINDAMYCIN. [Concomitant]
     Active Substance: CLINDAMYCIN
     Indication: CELLULITIS
     Dosage: 1350 MILLIGRAM
     Route: 048
     Dates: start: 20180511
  5. FUROSEMIDE. [Concomitant]
     Active Substance: FUROSEMIDE
     Indication: CORONARY ARTERY DISEASE
     Dosage: 80 MILLIGRAM
     Route: 048
     Dates: start: 2017, end: 20180424
  6. FUROSEMIDE. [Concomitant]
     Active Substance: FUROSEMIDE
     Dosage: 40 MILLIGRAM
     Route: 041
     Dates: start: 20180424, end: 20180429
  7. SENNA [Concomitant]
     Active Substance: SENNA LEAF\SENNOSIDES\SENNOSIDES A AND B
     Indication: CONSTIPATION PROPHYLAXIS
     Dosage: 17.2 MILLIGRAM
     Route: 048
     Dates: start: 20180423
  8. ACYCLOVIR. [Concomitant]
     Active Substance: ACYCLOVIR
     Indication: VIRAL INFECTION
     Dosage: 800 MILLIGRAM
     Route: 048
     Dates: start: 20180430
  9. TAZOCIN [Concomitant]
     Active Substance: PIPERACILLIN SODIUM\TAZOBACTAM SODIUM
     Indication: CELLULITIS
     Dosage: 13.5 GRAM
     Route: 041
     Dates: start: 20180518
  10. VENETOCLAX. [Concomitant]
     Active Substance: VENETOCLAX
     Indication: ACUTE MYELOID LEUKAEMIA
     Route: 048
     Dates: start: 20180423, end: 20180423
  11. ROSUVASTATIN. [Concomitant]
     Active Substance: ROSUVASTATIN
     Indication: BLOOD CHOLESTEROL INCREASED
     Dosage: 10 MILLIGRAM
     Route: 048
     Dates: start: 2008, end: 20180422
  12. FLUCONAZOLE. [Concomitant]
     Active Substance: FLUCONAZOLE
     Indication: ANTIFUNGAL PROPHYLAXIS
     Dosage: 400 MILLIGRAM
     Route: 048
     Dates: start: 20180430
  13. VENETOCLAX. [Concomitant]
     Active Substance: VENETOCLAX
     Route: 048
     Dates: start: 20180424, end: 20180424
  14. VENETOCLAX. [Concomitant]
     Active Substance: VENETOCLAX
     Route: 048
     Dates: start: 20180425, end: 20180706
  15. FUROSEMIDE. [Concomitant]
     Active Substance: FUROSEMIDE
     Indication: OEDEMA PERIPHERAL
     Dosage: 20 MILLIGRAM
     Route: 041
     Dates: start: 20180424, end: 20180424
  16. VIDAZA [Suspect]
     Active Substance: AZACITIDINE
     Indication: ACUTE MYELOID LEUKAEMIA
     Dosage: 75 MILLIGRAM/SQ. METER
     Route: 058
     Dates: start: 20180423, end: 20180701
  17. ROSUVASTATIN. [Concomitant]
     Active Substance: ROSUVASTATIN
     Dosage: 10 MILLIGRAM
     Route: 065
     Dates: start: 20180501

REACTIONS (2)
  - Sepsis [Fatal]
  - Cardiac arrest [Fatal]

NARRATIVE: CASE EVENT DATE: 20180707
